FAERS Safety Report 7953953-9 (Version None)
Quarter: 2011Q4

REPORT INFORMATION
  Report Type: 
  Country: None (occurrence: None)
  Receive Date: 20111202
  Receipt Date: 20111130
  Transmission Date: 20120403
  Serious: Yes (Death, Other)
  Sender: FDA-Public Use
  Company Number: GR-B.I. PHARMACEUTICALS,INC./RIDGEFIELD-2011-EU-00831GB

PATIENT
  Age: 72 Year
  Sex: Female

DRUGS (4)
  1. PRADAXA [Suspect]
     Indication: ATRIAL FIBRILLATION
     Dosage: 220 MG
     Route: 048
     Dates: start: 20111001
  2. SINTROM [Concomitant]
     Indication: ATRIAL FIBRILLATION
     Dates: end: 20111001
  3. DEPAKENE [Concomitant]
     Indication: EPILEPSY
  4. OLMESARTAN MEDOXOMIL AND HYDROCHLOROTHIZIDE [Concomitant]
     Indication: HYPERTENSION

REACTIONS (4)
  - AORTIC DISSECTION [None]
  - AORTIC RUPTURE [None]
  - CEREBROVASCULAR ACCIDENT [None]
  - LOSS OF CONSCIOUSNESS [None]
